FAERS Safety Report 4540898-X (Version None)
Quarter: 2004Q4

REPORT INFORMATION
  Report Type: 
  Country: None (occurrence: None)
  Receive Date: 20041229
  Receipt Date: 20041221
  Transmission Date: 20050328
  Serious: Yes (Death)
  Sender: FDA-Public Use
  Company Number: GBPFL-S-20040023

PATIENT
  Age: 57 Year
  Sex: Female

DRUGS (2)
  1. NAVELBINE [Suspect]
     Indication: NON-SMALL CELL LUNG CANCER
     Route: 042
     Dates: start: 20041006, end: 20041117
  2. ORAMORPH SR [Concomitant]
     Indication: PAIN PROPHYLAXIS
     Dates: start: 20041001

REACTIONS (9)
  - DISEASE PROGRESSION [None]
  - DRY SKIN [None]
  - DYSPNOEA [None]
  - FEELING ABNORMAL [None]
  - GENERAL PHYSICAL HEALTH DETERIORATION [None]
  - MOBILITY DECREASED [None]
  - PAIN [None]
  - PAIN OF SKIN [None]
  - SKIN CHAPPED [None]
